FAERS Safety Report 15455917 (Version 1)
Quarter: 2018Q4

REPORT INFORMATION
  Report Type: Other
  Country: JP (occurrence: JP)
  Receive Date: 20181002
  Receipt Date: 20181002
  Transmission Date: 20190204
  Serious: Yes (Hospitalization)
  Sender: FDA-Public Use
  Company Number: JP-LEADING PHARMA, LLC-2055582

PATIENT
  Age: 73 Year
  Sex: Female

DRUGS (1)
  1. LORAZEPAM. [Suspect]
     Active Substance: LORAZEPAM
     Indication: ANXIETY

REACTIONS (6)
  - Pulseless electrical activity [Recovered/Resolved]
  - Left ventricle outflow tract obstruction [Recovered/Resolved]
  - Haemolytic anaemia [Recovered/Resolved]
  - Cardiac arrest [Recovered/Resolved]
  - Cardiogenic shock [Recovered/Resolved]
  - Haemodynamic instability [Recovered/Resolved]
